FAERS Safety Report 10759993 (Version 3)
Quarter: 2017Q1

REPORT INFORMATION
  Report Type: Spontaneous
  Country: US (occurrence: US)
  Receive Date: 20150203
  Receipt Date: 20170213
  Transmission Date: 20170428
  Serious: Yes (Hospitalization)
  Sender: FDA-Public Use
  Company Number: NZ-RANBAXY-2013US-71940

PATIENT
  Age: 51 Year
  Sex: Female

DRUGS (6)
  1. BIAXIN [Interacting]
     Active Substance: CLARITHROMYCIN
     Indication: RESPIRATORY DISORDER
     Dosage: 500 MG, BID
     Route: 065
  2. FAMOTIDINE. [Concomitant]
     Active Substance: FAMOTIDINE
     Indication: PRODUCT USED FOR UNKNOWN INDICATION
     Dosage: 10-20 MG/D AS NEEDED
     Route: 065
  3. LIPITOR [Suspect]
     Active Substance: ATORVASTATIN CALCIUM
     Indication: PRODUCT USED FOR UNKNOWN INDICATION
     Dosage: 10 MG, DAILY
     Route: 065
  4. CONJUGATED ESTROGEN [Concomitant]
     Active Substance: ESTROGENS, CONJUGATED
     Indication: PRODUCT USED FOR UNKNOWN INDICATION
     Dosage: 0.625 MG, DAILY
     Route: 065
  5. BIAXIN [Interacting]
     Active Substance: CLARITHROMYCIN
     Indication: PYREXIA
  6. NEXIUM [Interacting]
     Active Substance: ESOMEPRAZOLE MAGNESIUM
     Indication: ABDOMINAL PAIN UPPER
     Dosage: 20 MG, DAILY
     Route: 065

REACTIONS (3)
  - Drug interaction [Recovering/Resolving]
  - Atrioventricular block complete [Recovering/Resolving]
  - Rhabdomyolysis [Recovering/Resolving]
